FAERS Safety Report 16142564 (Version 1)
Quarter: 2019Q2

REPORT INFORMATION
  Report Type: Spontaneous
  Country: FR (occurrence: FR)
  Receive Date: 20190401
  Receipt Date: 20190401
  Transmission Date: 20190711
  Serious: Yes (Other)
  Sender: FDA-Public Use
  Company Number: FR-PFIZER INC-2019132375

PATIENT
  Age: 34 Year
  Sex: Male

DRUGS (2)
  1. MEROPENEM. [Suspect]
     Active Substance: MEROPENEM
     Indication: PSEUDOMONAS INFECTION
     Dosage: 84 G, CYCLIC (EVERY 4 MONTHS)
     Route: 042
     Dates: start: 2007, end: 20171006
  2. NEBCINE [Concomitant]
     Active Substance: TOBRAMYCIN
     Indication: PSEUDOMONAS INFECTION
     Dosage: 6300 MG, CYCLIC (EVERY 4 MONTHS)
     Route: 042
     Dates: start: 2000, end: 20171006

REACTIONS (2)
  - Fixed eruption [Recovered/Resolved]
  - Product use issue [Unknown]

NARRATIVE: CASE EVENT DATE: 20171005
